FAERS Safety Report 10235122 (Version 1)
Quarter: 2014Q2

REPORT INFORMATION
  Report Type: Spontaneous
  Country: CH (occurrence: CH)
  Receive Date: 20140613
  Receipt Date: 20140613
  Transmission Date: 20141212
  Serious: Yes (Death)
  Sender: FDA-Public Use
  Company Number: CH-JNJFOC-20140606098

PATIENT
  Age: 73 Year
  Sex: Female
  Weight: 50 kg

DRUGS (5)
  1. XARELTO [Suspect]
     Indication: CEREBROVASCULAR ACCIDENT PROPHYLAXIS
     Route: 048
     Dates: end: 20140519
  2. XARELTO [Suspect]
     Indication: ATRIAL FIBRILLATION
     Route: 048
     Dates: end: 20140519
  3. ATACAND [Concomitant]
     Route: 048
     Dates: end: 20140519
  4. LETROZOLE [Concomitant]
     Route: 048
     Dates: end: 20140519
  5. OEDEMEX [Concomitant]
     Route: 048
     Dates: end: 20140519

REACTIONS (3)
  - Coma [Fatal]
  - Cerebral haemorrhage [Fatal]
  - Cardiac arrest [Unknown]
